FAERS Safety Report 9427871 (Version 2)
Quarter: 2013Q3

REPORT INFORMATION
  Report Type: Spontaneous
  Country: JP (occurrence: JP)
  Receive Date: 20130730
  Receipt Date: 20130820
  Transmission Date: 20140515
  Serious: Yes (Hospitalization)
  Sender: FDA-Public Use
  Company Number: JP-PFIZER INC-2013221307

PATIENT
  Age: 5 Decade
  Sex: Female

DRUGS (1)
  1. RELPAX [Suspect]
     Indication: MIGRAINE
     Dosage: UNK
     Route: 048

REACTIONS (1)
  - Appendicitis [Recovered/Resolved]
